FAERS Safety Report 5067495-4 (Version None)
Quarter: 2006Q3

REPORT INFORMATION
  Report Type: 
  Country: None (occurrence: None)
  Receive Date: 20060802
  Receipt Date: 20060223
  Transmission Date: 20061208
  Serious: Yes (Hospitalization)
  Sender: FDA-Public Use
  Company Number: JP-BAYER-200610329BYL

PATIENT
  Age: 66 Year
  Sex: Male

DRUGS (8)
  1. ADALAT [Suspect]
     Indication: ESSENTIAL HYPERTENSION
     Dosage: TOTAL DAILY DOSE: 20 MG  UNIT DOSE: 20 MG
     Dates: start: 20051029, end: 20051118
  2. DIOVAN [Concomitant]
     Indication: ESSENTIAL HYPERTENSION
     Route: 048
     Dates: start: 20030610
  3. DIOVAN [Concomitant]
     Route: 048
     Dates: start: 20050119, end: 20051118
  4. EUGLUCON [Concomitant]
     Indication: DIABETES MELLITUS
     Route: 048
     Dates: start: 20020730
  5. DAONIL [Concomitant]
     Indication: DIABETES MELLITUS
     Route: 048
     Dates: start: 20030509
  6. PAMILCON [Concomitant]
     Indication: DIABETES MELLITUS
     Route: 048
     Dates: start: 20050119, end: 20051118
  7. LASIX [Concomitant]
     Indication: ESSENTIAL HYPERTENSION
     Route: 065
     Dates: start: 20051125, end: 20051125
  8. LASIX [Concomitant]
     Route: 065
     Dates: start: 20051126, end: 20051201

REACTIONS (1)
  - RHABDOMYOLYSIS [None]
